FAERS Safety Report 6695048-0 (Version None)
Quarter: 2010Q2

REPORT INFORMATION
  Report Type: 
  Country: None (occurrence: None)
  Receive Date: 20100423
  Receipt Date: 20100408
  Transmission Date: 20101027
  Serious: Yes (Other)
  Sender: FDA-Public Use
  Company Number: PHHY2010JP22345

PATIENT
  Sex: Male

DRUGS (6)
  1. TASIGNA [Suspect]
     Indication: CHRONIC MYELOID LEUKAEMIA
     Dosage: 400 MG
     Route: 048
     Dates: start: 20090908, end: 20090917
  2. TASIGNA [Suspect]
     Dosage: 800 MG
     Route: 048
     Dates: start: 20090918, end: 20091201
  3. FAMOTIDINE [Concomitant]
     Dosage: 40 MG
     Route: 048
     Dates: start: 20090908, end: 20091201
  4. VFEND [Concomitant]
     Indication: PNEUMONIA
     Dosage: 400 MG
     Route: 048
     Dates: start: 20090908, end: 20091201
  5. CRAVIT [Concomitant]
     Indication: PNEUMONIA
     Dosage: 500 MG
     Route: 048
     Dates: start: 20090908, end: 20091005
  6. MINOCYCLINE HCL [Concomitant]
     Indication: PNEUMONIA
     Dosage: 200 MG
     Route: 048
     Dates: start: 20091006, end: 20091201

REACTIONS (2)
  - BLAST CRISIS IN MYELOGENOUS LEUKAEMIA [None]
  - DRUG INEFFECTIVE [None]
